FAERS Safety Report 24831229 (Version 1)
Quarter: 2025Q1

REPORT INFORMATION
  Report Type: Report from Study
  Country: US (occurrence: US)
  Receive Date: 20250110
  Receipt Date: 20250110
  Transmission Date: 20250409
  Serious: Yes (Other)
  Sender: REGENERON
  Company Number: US-REGENERON PHARMACEUTICALS, INC.-2024-171357

PATIENT
  Sex: Female

DRUGS (1)
  1. CEMIPLIMAB [Suspect]
     Active Substance: CEMIPLIMAB
     Indication: Squamous cell carcinoma of skin
     Dosage: 350 MG, Q3W
     Route: 042
     Dates: start: 20241129

REACTIONS (10)
  - Tumour flare [Unknown]
  - Mass [Unknown]
  - Pruritus [Recovering/Resolving]
  - Diarrhoea [Recovered/Resolved]
  - Injection site inflammation [Unknown]
  - Pruritus [Unknown]
  - Tumour pain [Unknown]
  - Vision blurred [Recovering/Resolving]
  - Skin lesion [Unknown]
  - Skin weeping [Unknown]

NARRATIVE: CASE EVENT DATE: 20241210
